FAERS Safety Report 23462613 (Version 2)
Quarter: 2025Q2

REPORT INFORMATION
  Report Type: Report from Study
  Country: US (occurrence: US)
  Receive Date: 20240131
  Receipt Date: 20250429
  Transmission Date: 20250716
  Serious: No
  Sender: MERCK SHARP & DOHME LLC
  Company Number: US-009507513-2401USA008960

PATIENT
  Age: 66 Year
  Sex: Male

DRUGS (3)
  1. BELSOMRA [Suspect]
     Active Substance: SUVOREXANT
     Indication: Insomnia
     Dosage: DOSE DESCRIPTION : 20 MILLIGRAM, NIGHTLY(QPM) CONCENTRATION: 20 MILLIGRAM
     Route: 048
     Dates: start: 202304, end: 20240929
  2. BELSOMRA [Suspect]
     Active Substance: SUVOREXANT
     Indication: Insomnia
     Route: 048
     Dates: start: 20240930
  3. ALLI [Concomitant]
     Active Substance: ORLISTAT
     Route: 065

REACTIONS (4)
  - Weight increased [Not Recovered/Not Resolved]
  - Insomnia [Recovered/Resolved]
  - Therapeutic product effect variable [Unknown]
  - Product dose omission issue [Unknown]

NARRATIVE: CASE EVENT DATE: 20240930
